FAERS Safety Report 5532122-6 (Version None)
Quarter: 2007Q4

REPORT INFORMATION
  Report Type: 
  Country: None (occurrence: None)
  Receive Date: 20071130
  Receipt Date: 20071130
  Transmission Date: 20080405
  Serious: Yes (Hospitalization)
  Sender: FDA-Public Use
  Company Number: None

PATIENT
  Sex: Male
  Weight: 113 kg

DRUGS (3)
  1. CYTARABINE [Suspect]
     Dosage: 484 MG
     Dates: start: 20071128, end: 20071129
  2. DAUNORUBICIN HCL [Suspect]
     Dosage: 436 MG
     Dates: end: 20071029
  3. ETOPOSIDE [Suspect]
     Dosage: 484 MG
     Dates: end: 20071029

REACTIONS (1)
  - TUMOUR LYSIS SYNDROME [None]
